FAERS Safety Report 21861294 (Version 1)
Quarter: 2023Q1

REPORT INFORMATION
  Report Type: Report from Study
  Country: US (occurrence: US)
  Receive Date: 20230113
  Receipt Date: 20230113
  Transmission Date: 20230417
  Serious: Yes (Other)
  Sender: FDA-Public Use
  Company Number: US-TAKEDA-2023TUS004514

PATIENT
  Age: 45 Year
  Sex: Female

DRUGS (8)
  1. TEDUGLUTIDE [Suspect]
     Active Substance: TEDUGLUTIDE
     Indication: Short-bowel syndrome
     Dosage: 5.000 MILLIGRAM, QD
     Route: 042
     Dates: start: 20180901
  2. TEDUGLUTIDE [Suspect]
     Active Substance: TEDUGLUTIDE
     Indication: Short-bowel syndrome
     Dosage: 5.000 MILLIGRAM, QD
     Route: 042
     Dates: start: 20180901
  3. TEDUGLUTIDE [Suspect]
     Active Substance: TEDUGLUTIDE
     Indication: Short-bowel syndrome
     Dosage: 5.000 MILLIGRAM, QD
     Route: 042
     Dates: start: 20180901
  4. TEDUGLUTIDE [Suspect]
     Active Substance: TEDUGLUTIDE
     Indication: Short-bowel syndrome
     Dosage: 5.000 MILLIGRAM, QD
     Route: 042
     Dates: start: 20180901
  5. TRANSDERM SCOP [Concomitant]
     Active Substance: SCOPOLAMINE
     Dosage: UNK UNK, TID
     Route: 062
  6. E-Z [Concomitant]
     Indication: Imaging procedure
     Dosage: UNK
     Route: 048
     Dates: start: 20190425, end: 20190425
  7. GADAVIST [Concomitant]
     Active Substance: GADOBUTROL
     Route: 065
  8. VOLUMEN [Concomitant]
     Active Substance: BARIUM SULFATE
     Indication: Stoma site pain
     Dosage: 148.00 GRAM
     Route: 048
     Dates: start: 20190425, end: 20191219

REACTIONS (1)
  - Vascular device infection [Recovered/Resolved]

NARRATIVE: CASE EVENT DATE: 20190527
